FAERS Safety Report 12375909 (Version 2)
Quarter: 2016Q3

REPORT INFORMATION
  Report Type: Spontaneous
  Country: US (occurrence: US)
  Receive Date: 20160517
  Receipt Date: 20160901
  Transmission Date: 20161109
  Serious: No
  Sender: FDA-Public Use
  Company Number: US-RELYPSA-RLY2016000075

PATIENT
  Age: 71 Year
  Sex: Male

DRUGS (20)
  1. TRIAMCINOLONE ACETONIDE. [Concomitant]
     Active Substance: TRIAMCINOLONE ACETONIDE
  2. VITAMIN B12 [Concomitant]
     Active Substance: CYANOCOBALAMIN
  3. VESICARE [Concomitant]
     Active Substance: SOLIFENACIN SUCCINATE
  4. LUTEIN                             /01638501/ [Concomitant]
     Active Substance: LUTEIN
  5. MAGNESIUM [Concomitant]
     Active Substance: MAGNESIUM
     Dosage: 500 MG, UNK
  6. BENADRYL [Concomitant]
     Active Substance: DIPHENHYDRAMINE HYDROCHLORIDE
  7. ZEAXANTHIN [Concomitant]
     Active Substance: ZEAXANTHIN
  8. NIFEDIPINE. [Concomitant]
     Active Substance: NIFEDIPINE
  9. FISH OIL [Concomitant]
     Active Substance: FISH OIL
  10. ELIQUIS [Concomitant]
     Active Substance: APIXABAN
  11. CLINDAMYCIN HCL [Concomitant]
     Active Substance: CLINDAMYCIN HYDROCHLORIDE
  12. VELTASSA [Suspect]
     Active Substance: PATIROMER
     Indication: HYPERKALAEMIA
     Dosage: 8.4 GM, QD
     Route: 048
     Dates: start: 201602
  13. TAMSULOSIN HCL [Concomitant]
     Active Substance: TAMSULOSIN
  14. VITAMIN D3 [Concomitant]
     Active Substance: CHOLECALCIFEROL
     Dosage: 4000 MG, BID
  15. COREG [Concomitant]
     Active Substance: CARVEDILOL
  16. VITAMIN E                          /00110501/ [Concomitant]
     Active Substance: TOCOPHEROL
  17. LISINOPRIL. [Concomitant]
     Active Substance: LISINOPRIL
  18. TURMERIC                           /01079602/ [Concomitant]
     Active Substance: TURMERIC
  19. VITAMIN C [Concomitant]
     Active Substance: ASCORBIC ACID
  20. COCONUT OIL [Concomitant]
     Active Substance: COCONUT OIL

REACTIONS (1)
  - Diarrhoea [Not Recovered/Not Resolved]

NARRATIVE: CASE EVENT DATE: 201602
